FAERS Safety Report 9433748 (Version 2)
Quarter: 2013Q3

REPORT INFORMATION
  Report Type: Spontaneous
  Country: US (occurrence: None)
  Receive Date: 20130729
  Receipt Date: 20130904
  Transmission Date: 20140515
  Serious: Yes (Other)
  Sender: FDA-Public Use
  Company Number: ACO_37538_2013

PATIENT
  Age: 48 Year
  Sex: Female
  Weight: 79.4 kg

DRUGS (16)
  1. AMPRYA [Suspect]
     Indication: GAIT DISTURBANCE
     Route: 048
     Dates: start: 2010
  2. AVONEX (INTERFERON BETA-1A) [Concomitant]
  3. LISINOPRIL [Concomitant]
  4. TRAZODONE [Concomitant]
  5. MYCOPHENOLATE (MYCOPHENOLATE MOFETIL) [Concomitant]
  6. NITROFURANTOIN [Concomitant]
  7. ENABLEX (DARIFENACIN HYDROBROMIDE) [Concomitant]
  8. SINGULAIR [Concomitant]
  9. LANSOPRAZOLE [Concomitant]
  10. INDOCIN (INDOMETACIN) [Concomitant]
  11. VITAMIN B12 (CYANOCOBALAMIN) [Concomitant]
  12. NASONEX (MOMETASONE FUROATE) [Concomitant]
  13. PROVENTIL (SALBUTAMOL) [Concomitant]
  14. CYMBALTA (DULOXETINE HYDROCHLORIDE) [Concomitant]
  15. MIRALAX [Concomitant]
  16. AMITIZA (LUBIPROSTONE) [Concomitant]

REACTIONS (19)
  - Trigeminal neuralgia [None]
  - Feeling abnormal [None]
  - Amnesia [None]
  - Amnesia [None]
  - Pertussis [None]
  - Muscle spasms [None]
  - Viral infection [None]
  - Sinus disorder [None]
  - Dyspnoea [None]
  - Sleep disorder [None]
  - Stress [None]
  - Fatigue [None]
  - Fall [None]
  - Contusion [None]
  - Oropharyngeal pain [None]
  - Menorrhagia [None]
  - Contusion [None]
  - Menopause [None]
  - Oropharyngeal pain [None]
